FAERS Safety Report 4995799-X (Version None)
Quarter: 2006Q1

REPORT INFORMATION
  Report Type: 
  Country: None (occurrence: None)
  Receive Date: 20060315
  Receipt Date: 20060104
  Transmission Date: 20060701
  Serious: Yes (Other)
  Sender: FDA-Public Use
  Company Number: 431231

PATIENT
  Sex: Female

DRUGS (7)
  1. BONIVA [Suspect]
     Dates: start: 20050815
  2. CALCIUM (CALCIUM) [Concomitant]
  3. ZOLOFT [Concomitant]
  4. XANAX [Concomitant]
  5. CRESTOR [Concomitant]
  6. PREVACID [Concomitant]
  7. MORPHINE PUMP (MORPHINE) [Concomitant]

REACTIONS (5)
  - BLOOD CHOLESTEROL INCREASED [None]
  - GASTROOESOPHAGEAL REFLUX DISEASE [None]
  - OEDEMA PERIPHERAL [None]
  - STOMACH DISCOMFORT [None]
  - WEIGHT INCREASED [None]
